FAERS Safety Report 9551077 (Version 5)
Quarter: 2014Q1

REPORT INFORMATION
  Report Type: Report from Study
  Country: ES (occurrence: ES)
  Receive Date: 20130925
  Receipt Date: 20140307
  Transmission Date: 20141002
  Serious: Yes (Other)
  Sender: FDA-Public Use
  Company Number: ES-AMGEN-ESPCT2013067023

PATIENT
  Age: 57 Year
  Sex: Female
  Weight: 59 kg

DRUGS (20)
  1. DENOSUMAB [Suspect]
     Indication: PLASMA CELL MYELOMA
     Dosage: UNK
     Route: 065
     Dates: start: 20130318
  2. NEUPOGEN [Concomitant]
     Dosage: 300 MUG, UNK
     Route: 058
     Dates: start: 20130620, end: 20130623
  3. THALIDOMIDE [Concomitant]
     Dosage: UNK
     Dates: start: 20130225, end: 20130801
  4. BORTEZOMIB [Concomitant]
     Dosage: UNK
     Dates: start: 20130225, end: 20130610
  5. DEXAMETHASONE [Concomitant]
     Dosage: UNK
     Dates: start: 20130225, end: 20130524
  6. OSELTAMIVIR [Concomitant]
     Dosage: 75 MG, UNK
     Route: 048
     Dates: start: 20130509, end: 20130515
  7. CIPROFLOXACINE                     /00697201/ [Concomitant]
     Dosage: 750 MG, UNK
     Route: 048
     Dates: start: 20130225, end: 20130805
  8. OMEPRAZOL                          /00661201/ [Concomitant]
     Dosage: 20 MG, UNK
     Route: 048
     Dates: start: 20130206, end: 20131107
  9. FLUCONAZOL [Concomitant]
     Dosage: 200 ML, UNK
     Route: 048
     Dates: start: 20130225, end: 20131104
  10. TRANKIMAZIN [Concomitant]
     Dosage: 0.5 MG, UNK
     Route: 048
     Dates: start: 201302, end: 20131104
  11. URBAL [Concomitant]
     Dosage: 1 G, UNK
     Route: 048
     Dates: start: 201302, end: 20131104
  12. HIDROXIL B12 B6 B1 [Concomitant]
     Dosage: 1 UNK, UNK
     Route: 048
     Dates: start: 20130318, end: 20131104
  13. PARACETAMOL [Concomitant]
     Dosage: 1 G, UNK
     Route: 048
     Dates: start: 20130620, end: 20130623
  14. LEVOFLOXACINE                      /01278901/ [Concomitant]
     Dosage: 500 MG, UNK
     Route: 048
     Dates: start: 20130620, end: 20130626
  15. ADIRO [Concomitant]
     Dosage: 100 MG, UNK
     Route: 048
     Dates: start: 20130225, end: 20130805
  16. ACICLOVIR [Concomitant]
     Dosage: 400 MG, UNK
     Route: 048
     Dates: start: 20130225, end: 20130805
  17. CYMBALTA [Concomitant]
     Dosage: 60 MG, UNK
     Route: 048
     Dates: start: 20130318, end: 20130805
  18. PRIMPERAN [Concomitant]
     Dosage: 5 ML ORAL, 1 UNK IV, UNK
     Route: 050
     Dates: start: 20130512, end: 20130520
  19. OSVICAL [Concomitant]
     Dosage: 1 UNK, UNK
     Route: 048
     Dates: start: 20130318
  20. AMOXICILLIN\CLAVULANATE POTASSIUM [Concomitant]
     Indication: PYREXIA
     Dosage: 1 UNK, UNK
     Route: 048
     Dates: start: 20130509, end: 20130515

REACTIONS (1)
  - Organising pneumonia [Recovered/Resolved]
